FAERS Safety Report 21377473 (Version 1)
Quarter: 2022Q3

REPORT INFORMATION
  Report Type: Spontaneous
  Country: US (occurrence: US)
  Receive Date: 20220926
  Receipt Date: 20220926
  Transmission Date: 20221027
  Serious: No
  Sender: FDA-Public Use
  Company Number: US-PFIZER INC-202200913337

PATIENT
  Age: 68 Year
  Sex: Female
  Weight: 74.84 kg

DRUGS (6)
  1. TOZINAMERAN [Suspect]
     Active Substance: TOZINAMERAN
     Indication: COVID-19 immunisation
     Dosage: DOSE NUMBER UNKNOWN, SINGLE
  2. XELJANZ [Suspect]
     Active Substance: TOFACITINIB CITRATE
     Dosage: ONE TABLET IN THE MORNING AND ONE TABLET IN THE EVENING
  3. VITAMIN D3 [Concomitant]
     Active Substance: CHOLECALCIFEROL
     Indication: Bone disorder
     Dosage: 125 UG, 1X/DAY
  4. FOLIC ACID [Concomitant]
     Active Substance: FOLIC ACID
     Indication: Plasma cell disorder
     Dosage: 1 MG, 1X/DAY
  5. PAMELOR [Concomitant]
     Active Substance: NORTRIPTYLINE HYDROCHLORIDE
     Indication: Sleep disorder
     Dosage: 100 MG, 2X/DAY (2 AT NIGHT BEFORE DAY TIME, BUT I TAKE 100 MG BEFORE SLEEP EACH NIGHT)
  6. PAMELOR [Concomitant]
     Active Substance: NORTRIPTYLINE HYDROCHLORIDE
     Indication: Depression

REACTIONS (1)
  - Herpes zoster [Unknown]

NARRATIVE: CASE EVENT DATE: 20220610
